FAERS Safety Report 14813172 (Version 2)
Quarter: 2018Q2

REPORT INFORMATION
  Report Type: Spontaneous
  Country: US (occurrence: US)
  Receive Date: 20180426
  Receipt Date: 20180516
  Transmission Date: 20180711
  Serious: No
  Sender: FDA-Public Use
  Company Number: US-009507513-1804USA000158

PATIENT
  Age: 77 Year
  Sex: Male

DRUGS (5)
  1. LISINOPRIL. [Suspect]
     Active Substance: LISINOPRIL
     Indication: CARDIAC DISORDER
     Dosage: 5 MG, QD
     Route: 048
     Dates: start: 201711, end: 201712
  2. TAMSULOSIN HYDROCHLORIDE. [Concomitant]
     Active Substance: TAMSULOSIN HYDROCHLORIDE
     Indication: PROSTATIC DISORDER
     Dosage: 5 MG, QD
     Route: 048
     Dates: start: 2015
  3. FINASTERIDE. [Concomitant]
     Active Substance: FINASTERIDE
     Indication: PROSTATIC DISORDER
     Dosage: 5 MG, QD
     Route: 048
     Dates: start: 2016
  4. LISINOPRIL. [Suspect]
     Active Substance: LISINOPRIL
     Dosage: A HALF TABLET, QD
     Route: 048
  5. XELJANZ [Suspect]
     Active Substance: TOFACITINIB CITRATE
     Indication: RHEUMATOID ARTHRITIS
     Dosage: 11 MG, QD
     Route: 048
     Dates: start: 201709

REACTIONS (3)
  - Swelling face [Recovered/Resolved]
  - Lip swelling [Recovered/Resolved]
  - Drug hypersensitivity [Recovered/Resolved]

NARRATIVE: CASE EVENT DATE: 201712
